FAERS Safety Report 6076932-8 (Version None)
Quarter: 2009Q1

REPORT INFORMATION
  Report Type: 
  Country: None (occurrence: None)
  Receive Date: 20090213
  Receipt Date: 20090202
  Transmission Date: 20090719
  Serious: Yes (Other)
  Sender: FDA-Public Use
  Company Number: US-ROCHE-612953

PATIENT
  Age: 63 Year
  Sex: Female

DRUGS (17)
  1. BONIVA [Suspect]
     Indication: OSTEOPOROSIS
     Route: 065
     Dates: start: 20081202
  2. ALLOPURINOL [Concomitant]
  3. CALCIUM SUPPLEMENT [Concomitant]
  4. POTASSIUM SUPPLEMENT [Concomitant]
  5. CELEBREX [Concomitant]
  6. NEURONTIN [Concomitant]
  7. ASCORBIC ACID [Concomitant]
  8. MAGNESIUM SULFATE [Concomitant]
  9. NEXIUM [Concomitant]
  10. LOPRESSOR [Concomitant]
  11. XANAX [Concomitant]
  12. LASIX [Concomitant]
  13. ASPIRIN [Concomitant]
  14. ANTIVERT [Concomitant]
     Dosage: DRUG: ANTIVERT OD
  15. IRON SUPPLEMENT [Concomitant]
  16. COUMADIN [Concomitant]
  17. TRAMADOL [Concomitant]
     Dosage: PRN

REACTIONS (3)
  - FALL [None]
  - INTERVERTEBRAL DISC PROTRUSION [None]
  - MUSCULOSKELETAL PAIN [None]
